FAERS Safety Report 8743938 (Version 2)
Quarter: 2013Q4

REPORT INFORMATION
  Report Type: Spontaneous
  Country: US (occurrence: US)
  Receive Date: 20120824
  Receipt Date: 20131101
  Transmission Date: 20140711
  Serious: No
  Sender: FDA-Public Use
  Company Number: US-009507513-1208USA001158

PATIENT
  Sex: Male

DRUGS (11)
  1. VICTRELIS [Suspect]
     Indication: HEPATITIS C
     Dosage: 800 MG, TID
     Route: 048
     Dates: start: 20120611
  2. ZOLOFT [Concomitant]
  3. AMLODIPINE [Concomitant]
  4. PRILOSEC [Concomitant]
  5. TOPROL XL TABLETS [Concomitant]
  6. CYCLOSPORINE [Concomitant]
     Dosage: 175 MG, QD
  7. PROGRAF [Concomitant]
  8. RIBASPHERE [Concomitant]
     Dosage: 600 MG, QAM
  9. RIBASPHERE [Concomitant]
     Dosage: 400 MG, HS
  10. PEGASYS [Concomitant]
     Dosage: 180 MICROGRAM, QW
  11. NEUPOGEN [Concomitant]
     Dosage: UNK
     Dates: start: 201201

REACTIONS (1)
  - White blood cell count abnormal [Not Recovered/Not Resolved]
